FAERS Safety Report 5672611-7 (Version None)
Quarter: 2008Q1

REPORT INFORMATION
  Report Type: 
  Country: None (occurrence: None)
  Receive Date: 20080319
  Receipt Date: 20060307
  Transmission Date: 20080703
  Serious: Yes (Hospitalization)
  Sender: FDA-Public Use
  Company Number: DE-JNJFOC-20050300056

PATIENT
  Sex: Female
  Weight: 80 kg

DRUGS (4)
  1. RISPERIDONE [Suspect]
     Indication: SCHIZOPHRENIA
     Route: 048
  2. FLUOXETINE [Suspect]
     Indication: DEPRESSION
  3. ZELDOX [Suspect]
     Indication: SCHIZOPHRENIA
  4. LORAZEPAM [Concomitant]

REACTIONS (2)
  - HALLUCINATION, AUDITORY [None]
  - SUICIDE ATTEMPT [None]
